APPROVED DRUG PRODUCT: CEFEPIME HYDROCHLORIDE
Active Ingredient: CEFEPIME HYDROCHLORIDE
Strength: EQ 500MG BASE/VIAL
Dosage Form/Route: INJECTABLE;INJECTION
Application: A203704 | Product #001
Applicant: QILU ANTIBIOTICS PHARMACEUTICAL CO LTD
Approved: Feb 1, 2016 | RLD: No | RS: Yes | Type: RX